FAERS Safety Report 8088114-9 (Version None)
Quarter: 2012Q1

REPORT INFORMATION
  Report Type: 
  Country: None (occurrence: None)
  Receive Date: 20120131
  Receipt Date: 20120118
  Transmission Date: 20120608
  Serious: Yes (Hospitalization, Other)
  Sender: FDA-Public Use
  Company Number: DE-BIOGENIDEC-2012BI000282

PATIENT
  Age: 39 Year
  Sex: Male

DRUGS (4)
  1. LEVETIRACETAM [Concomitant]
     Dates: start: 20111228
  2. CARBAMAZEPINE [Concomitant]
     Indication: EPILEPSY
  3. TYSABRI [Suspect]
     Indication: MULTIPLE SCLEROSIS
     Route: 042
     Dates: start: 20080425, end: 20111129
  4. TIZANIDIN [Concomitant]
     Indication: MUSCLE SPASTICITY

REACTIONS (2)
  - PROGRESSIVE MULTIFOCAL LEUKOENCEPHALOPATHY [None]
  - STATUS EPILEPTICUS [None]
